FAERS Safety Report 7012354-0 (Version None)
Quarter: 2010Q3

REPORT INFORMATION
  Report Type: 
  Country: None (occurrence: None)
  Receive Date: 20100924
  Receipt Date: 20100913
  Transmission Date: 20110219
  Serious: Yes (Other)
  Sender: FDA-Public Use
  Company Number: PHHY2009JP08117

PATIENT
  Sex: Female
  Weight: 48.8 kg

DRUGS (9)
  1. METOPIRONE [Suspect]
     Indication: PITUITARY-DEPENDENT CUSHING'S SYNDROME
     Dosage: 250 MG, QID
     Route: 048
     Dates: start: 20081024, end: 20081028
  2. METOPIRONE [Suspect]
     Dosage: 250 MG, 8QD
     Route: 048
     Dates: start: 20081029, end: 20081110
  3. DEXAMETHASONE [Concomitant]
     Dosage: 0.5 MG
  4. SLOW-K [Concomitant]
     Indication: HYPOKALAEMIA
     Dosage: 2.4 G, UNK
     Route: 048
     Dates: start: 20080924, end: 20081112
  5. TAKEPRON [Concomitant]
     Indication: GASTRITIS
     Dosage: 15 MG, UNK
     Route: 048
     Dates: start: 20080930
  6. THYRADIN S [Concomitant]
     Indication: HYPOTHYROIDISM
     Dosage: 25 UG, UNK
     Route: 048
     Dates: start: 20080930, end: 20081224
  7. EPLERENONE [Concomitant]
     Indication: HYPOKALAEMIA
     Dosage: 50 MG, UNK
     Route: 048
     Dates: start: 20081007, end: 20081112
  8. SELBEX [Concomitant]
     Indication: PROPHYLAXIS
     Dosage: 200 MG, UNK
     Route: 048
     Dates: start: 20081024, end: 20081117
  9. CRAVIT [Concomitant]
     Indication: PNEUMONIA
     Dosage: 300 MG, UNK
     Route: 048
     Dates: start: 20081028, end: 20081111

REACTIONS (12)
  - BLOOD CORTICOTROPHIN DECREASED [None]
  - BLOOD CORTISOL DECREASED [None]
  - BLOOD CORTISOL INCREASED [None]
  - HEADACHE [None]
  - HYPONATRAEMIA [None]
  - HYPOPHYSECTOMY [None]
  - MALAISE [None]
  - NAUSEA [None]
  - PITUITARY HAEMORRHAGE [None]
  - PITUITARY TUMOUR BENIGN [None]
  - SURGERY [None]
  - VOMITING [None]
